FAERS Safety Report 9483350 (Version 1)
Quarter: 2013Q3

REPORT INFORMATION
  Report Type: Spontaneous
  Country: CA (occurrence: CA)
  Receive Date: 20130828
  Receipt Date: 20130828
  Transmission Date: 20140515
  Serious: Yes (Hospitalization, Other)
  Sender: FDA-Public Use
  Company Number: CA-AMGEN-KDL256349

PATIENT
  Age: 51 Year
  Sex: Female
  Weight: 103 kg

DRUGS (3)
  1. ENBREL [Suspect]
     Indication: PSORIATIC ARTHROPATHY
     Dosage: UNK UNK, QWK
     Route: 058
     Dates: start: 20041026
  2. PANTOLOC [Concomitant]
  3. ZOLMITRIPTAN [Concomitant]

REACTIONS (6)
  - Pancreatitis [Unknown]
  - Urinary tract infection [Unknown]
  - Pharyngitis streptococcal [Unknown]
  - Bladder neoplasm [Unknown]
  - Injection site pain [Unknown]
  - Sinusitis [Unknown]
